FAERS Safety Report 22050234 (Version 4)
Quarter: 2023Q1

REPORT INFORMATION
  Report Type: Spontaneous
  Country: US (occurrence: US)
  Receive Date: 20230301
  Receipt Date: 20230301
  Transmission Date: 20230417
  Serious: No
  Sender: FDA-Public Use
  Company Number: US-AMERICAN REGENT INC-2022001889

PATIENT
  Age: 38 Year
  Sex: Female

DRUGS (3)
  1. ESTRADIOL VALERATE [Suspect]
     Active Substance: ESTRADIOL VALERATE
     Indication: Infertility female
     Dosage: 0.1-0.2 ML/20 MG /1 ML
     Route: 030
     Dates: start: 20220428, end: 20220428
  2. ESTRADIOL VALERATE [Suspect]
     Active Substance: ESTRADIOL VALERATE
     Dosage: 0.1-0.2 ML/20 MG /1 ML
     Route: 030
     Dates: start: 20220501, end: 20220501
  3. LUPRON [Concomitant]
     Active Substance: LEUPROLIDE ACETATE
     Indication: Infertility female
     Dosage: 10 INTERNATIONAL UNIT, ONCE DAILY
     Route: 058
     Dates: start: 20220414, end: 20220504

REACTIONS (3)
  - Therapy non-responder [Recovered/Resolved]
  - Product quality issue [Unknown]
  - Product use in unapproved indication [Unknown]

NARRATIVE: CASE EVENT DATE: 20220401
